FAERS Safety Report 7394333-7 (Version None)
Quarter: 2011Q2

REPORT INFORMATION
  Report Type: 
  Country: None (occurrence: None)
  Receive Date: 20110405
  Receipt Date: 20110330
  Transmission Date: 20111010
  Serious: Yes (Other)
  Sender: FDA-Public Use
  Company Number: DE-PFIZER INC-2011070389

PATIENT
  Age: 45 Year
  Sex: Male

DRUGS (1)
  1. CLINDAMYCIN HCL [Suspect]
     Indication: OSTEITIS
     Dosage: 600 MG, 2X/DAY
     Route: 048

REACTIONS (5)
  - SKIN LESION [None]
  - CHEILOSIS [None]
  - PARAESTHESIA [None]
  - BLISTER [None]
  - ERYTHEMA [None]
